FAERS Safety Report 4585979-X (Version None)
Quarter: 2005Q1

REPORT INFORMATION
  Report Type: 
  Country: None (occurrence: None)
  Receive Date: 20050217
  Receipt Date: 20050207
  Transmission Date: 20050727
  Serious: Yes (Hospitalization)
  Sender: FDA-Public Use
  Company Number: DE-ABBOTT-05P-062-0290018-00

PATIENT
  Age: 53 Year
  Sex: Male

DRUGS (18)
  1. AKINETON [Suspect]
     Indication: DRUG USE FOR UNKNOWN INDICATION
     Route: 048
     Dates: start: 20020311, end: 20020406
  2. LEVOTHYROXINE SODIUM [Suspect]
     Indication: DRUG USE FOR UNKNOWN INDICATION
     Route: 048
     Dates: start: 20020225, end: 20020416
  3. RISPERIDONE [Suspect]
     Indication: DRUG USE FOR UNKNOWN INDICATION
     Route: 048
     Dates: start: 20020306, end: 20020406
  4. LEPONEX [Suspect]
     Indication: DRUG USE FOR UNKNOWN INDICATION
     Route: 048
     Dates: start: 20020326, end: 20020326
  5. LEPONEX [Suspect]
     Route: 048
     Dates: start: 20020327, end: 20020327
  6. LEPONEX [Suspect]
     Route: 048
     Dates: start: 20020328, end: 20020330
  7. LEPONEX [Suspect]
     Route: 048
     Dates: start: 20020331, end: 20020401
  8. LEPONEX [Suspect]
     Route: 048
     Dates: start: 20020402, end: 20020406
  9. LEPONEX [Suspect]
     Route: 048
     Dates: start: 20020412, end: 20020413
  10. OLANZAPINE [Suspect]
     Indication: DRUG USE FOR UNKNOWN INDICATION
     Route: 048
     Dates: start: 20020415, end: 20020417
  11. OLANZAPINE [Suspect]
     Route: 048
     Dates: start: 20020418, end: 20020424
  12. OLANZAPINE [Suspect]
     Route: 048
     Dates: start: 20020425, end: 20020512
  13. OLANZAPINE [Suspect]
     Route: 048
     Dates: start: 20020513, end: 20020514
  14. OLANZAPINE [Suspect]
     Route: 048
     Dates: start: 20020515, end: 20020530
  15. LORAZEPAM [Suspect]
     Indication: DRUG USE FOR UNKNOWN INDICATION
     Route: 048
     Dates: start: 20020411, end: 20020415
  16. LORAZEPAM [Suspect]
     Route: 048
     Dates: start: 20020416, end: 20020416
  17. LORAZEPAM [Suspect]
     Route: 048
     Dates: start: 20020417, end: 20020420
  18. LORAZEPAM [Suspect]
     Route: 048
     Dates: start: 20020421, end: 20020512

REACTIONS (6)
  - ATRIAL FIBRILLATION [None]
  - BODY TEMPERATURE INCREASED [None]
  - C-REACTIVE PROTEIN INCREASED [None]
  - CARDIAC FAILURE [None]
  - FATIGUE [None]
  - MYOCARDITIS [None]
